FAERS Safety Report 6258500-8 (Version None)
Quarter: 2009Q3

REPORT INFORMATION
  Report Type: 
  Country: None (occurrence: None)
  Receive Date: 20090707
  Receipt Date: 20090625
  Transmission Date: 20100115
  Serious: Yes (Other)
  Sender: FDA-Public Use
  Company Number: JP-PFIZER INC-2009233761

PATIENT
  Age: 78 Year

DRUGS (3)
  1. ZOLOFT [Suspect]
     Indication: DEPRESSION
     Dosage: 25 MG A DAY
     Route: 048
  2. OLANZAPINE [Concomitant]
     Indication: MAJOR DEPRESSION
     Route: 048
  3. LENDORMIN [Concomitant]

REACTIONS (2)
  - AGITATION [None]
  - DELUSION [None]
